FAERS Safety Report 7972055 (Version 4)
Quarter: 2012Q4

REPORT INFORMATION
  Report Type: Report from Study
  Country: DE (occurrence: DE)
  Receive Date: 20110602
  Receipt Date: 20120924
  Transmission Date: 20130627
  Serious: Yes (Life-Threatening, Hospitalization)
  Sender: FDA-Public Use
  Company Number: DE-GILEAD-E2B_00001301

PATIENT
  Age: 63 Year
  Sex: Female

DRUGS (3)
  1. AMBRISENTAN [Suspect]
     Indication: PULMONARY ARTERIAL HYPERTENSION
     Dosage: 10 mg, QD
     Route: 048
     Dates: start: 201002
  2. AMBRISENTAN [Suspect]
     Dosage: 5 mg, QD
     Route: 048
     Dates: start: 20110707
  3. PHENPROCOUMON [Concomitant]

REACTIONS (2)
  - Gastritis haemorrhagic [Recovered/Resolved with Sequelae]
  - Accidental overdose [Recovered/Resolved]
